FAERS Safety Report 6371772-4 (Version None)
Quarter: 2009Q3

REPORT INFORMATION
  Report Type: 
  Country: None (occurrence: None)
  Receive Date: 20090918
  Receipt Date: 20090918
  Transmission Date: 20100115
  Serious: Yes (Hospitalization)
  Sender: FDA-Public Use
  Company Number: None

PATIENT
  Age: 84 Year
  Sex: Male
  Weight: 74 kg

DRUGS (17)
  1. SEROQUEL [Suspect]
     Indication: PSYCHOTIC DISORDER
     Dosage: 75MG PO QHS
     Route: 048
     Dates: start: 20070801
  2. DOCUSATE [Concomitant]
  3. HYDROCHLOROTHIAZIDE [Concomitant]
  4. DIGOXIN [Concomitant]
  5. PRAZSOIN HCL [Concomitant]
  6. ASPIRIN [Concomitant]
  7. OXYBUTYNIN CHLORIDE [Concomitant]
  8. LORATADINE [Concomitant]
  9. DILANTIN [Concomitant]
  10. SERTRALINE HCL [Concomitant]
  11. TOPIRAMATE [Concomitant]
  12. BENAZEPRIL HYDROCHLORIDE [Concomitant]
  13. FOLIC ACID [Concomitant]
  14. SALSALATE [Concomitant]
  15. FLUNISOLIDE [Concomitant]
  16. ALBUTEROL/IPRAT BR [Concomitant]
  17. FLEETS ENE [Concomitant]

REACTIONS (4)
  - ABDOMINAL PAIN [None]
  - CONDITION AGGRAVATED [None]
  - CONSTIPATION [None]
  - DYSPNOEA [None]
